FAERS Safety Report 4662775-6 (Version None)
Quarter: 2005Q2

REPORT INFORMATION
  Report Type: 
  Country: None (occurrence: None)
  Receive Date: 20050512
  Receipt Date: 20050422
  Transmission Date: 20051028
  Serious: Yes (Disabling)
  Sender: FDA-Public Use
  Company Number: GBS050417214

PATIENT
  Age: 54 Year
  Sex: Female

DRUGS (31)
  1. XIGRIS [Suspect]
     Indication: DISSEMINATED INTRAVASCULAR COAGULATION
     Dosage: 47.5 M1
     Dates: start: 20050302, end: 20050306
  2. CEFUROXIME [Concomitant]
  3. METRONIDAZOLE [Concomitant]
  4. PARACETAMOL [Concomitant]
  5. MORPHINE [Concomitant]
  6. CYCLIZINE [Concomitant]
  7. AMOXICILLIN [Concomitant]
  8. RANITIDINE [Concomitant]
  9. MAGNESIUM SULPHATE PASTE [Concomitant]
  10. GENTAMICIN [Concomitant]
  11. SYNACTHEN (TETRACOSACTIDE) [Concomitant]
  12. METOCLOPRAMIDE [Concomitant]
  13. SODIUM ACID PHOPHATE [Concomitant]
  14. PROPOFOL [Concomitant]
  15. FENTANYL [Concomitant]
  16. ATRACURIUM [Concomitant]
  17. TINZAPARIN [Concomitant]
  18. POTASSIUM CHLORIDE [Concomitant]
  19. DOBUTAMINE HCL [Concomitant]
  20. DICLOFENAC SODIUM [Concomitant]
  21. FLUCONAZOLE [Concomitant]
  22. FRUSEMIDE [Concomitant]
  23. SANDO K (POTASSIUM CHLORIDE) [Concomitant]
  24. SALBUTAMOL [Concomitant]
  25. ZOPICLONE (ZOPICLONE) [Concomitant]
  26. HUMAN ACTRAPID (INSULIN HUMAN) [Concomitant]
  27. METARAMINOL [Concomitant]
  28. MELATONIN [Concomitant]
  29. ERYTHROMYCIN (ERYTHROMYCIN) [Concomitant]
  30. VISCOTEARS (CARBOMER) [Concomitant]
  31. PHOSPHATES ENEMA [Concomitant]

REACTIONS (1)
  - DEAFNESS NEUROSENSORY [None]
